FAERS Safety Report 22031070 (Version 3)
Quarter: 2023Q2

REPORT INFORMATION
  Report Type: Spontaneous
  Country: US (occurrence: US)
  Receive Date: 20230223
  Receipt Date: 20230620
  Transmission Date: 20230722
  Serious: Yes (Other)
  Sender: FDA-Public Use
  Company Number: US-BRISTOL-MYERS SQUIBB COMPANY-2023-024807

PATIENT
  Age: 51 Year
  Sex: Male
  Weight: 88.9 kg

DRUGS (4)
  1. REVLIMID [Suspect]
     Active Substance: LENALIDOMIDE
     Indication: Plasma cell myeloma
     Dosage: DAILY DAYS 1-28 EVERY 28 DAYS
     Route: 048
     Dates: start: 20220407
  2. REVLIMID [Suspect]
     Active Substance: LENALIDOMIDE
     Dosage: ONE CAPSULE DAILY
     Route: 048
     Dates: start: 20220407
  3. REVLIMID [Suspect]
     Active Substance: LENALIDOMIDE
     Dosage: ONCE DAILY
     Dates: start: 2023
  4. REVLIMID [Suspect]
     Active Substance: LENALIDOMIDE
     Route: 048
     Dates: start: 20220407

REACTIONS (8)
  - Plasma cell myeloma recurrent [Unknown]
  - Drug ineffective [Not Recovered/Not Resolved]
  - Laboratory test abnormal [Not Recovered/Not Resolved]
  - Diverticulitis [Not Recovered/Not Resolved]
  - Arthralgia [Not Recovered/Not Resolved]
  - Hypoaesthesia [Not Recovered/Not Resolved]
  - Peripheral swelling [Not Recovered/Not Resolved]
  - Full blood count decreased [Not Recovered/Not Resolved]
